FAERS Safety Report 8599101-6 (Version None)
Quarter: 2012Q3

REPORT INFORMATION
  Report Type: 
  Country: None (occurrence: None)
  Receive Date: 20120806
  Receipt Date: 20120806
  Transmission Date: 20120928
  Serious: Yes (Other)
  Sender: FDA-Public Use
  Company Number: None

PATIENT
  Age: 63 Year
  Sex: Female
  Weight: 47.6277 kg

DRUGS (1)
  1. RECLAST [Suspect]
     Indication: OSTEOPOROSIS
     Dosage: 100 MG
     Dates: start: 20120614, end: 20120614

REACTIONS (10)
  - ARTHRALGIA [None]
  - NAUSEA [None]
  - BEDRIDDEN [None]
  - INCORRECT ROUTE OF DRUG ADMINISTRATION [None]
  - NEURALGIA [None]
  - FURUNCLE [None]
  - MYALGIA [None]
  - OEDEMA PERIPHERAL [None]
  - PAIN [None]
  - SKIN DISORDER [None]
